FAERS Safety Report 10416629 (Version 1)
Quarter: 2014Q3

REPORT INFORMATION
  Report Type: Spontaneous
  Country: BR (occurrence: BR)
  Receive Date: 20140828
  Receipt Date: 20140828
  Transmission Date: 20150326
  Serious: Yes (Disabling, Other)
  Sender: FDA-Public Use
  Company Number: BR-ABBVIE-14P-020-1276798-00

PATIENT
  Sex: Female

DRUGS (1)
  1. DEPAKOTE ER [Suspect]
     Active Substance: DIVALPROEX SODIUM
     Indication: PRODUCT USED FOR UNKNOWN INDICATION

REACTIONS (7)
  - Wrong technique in drug usage process [Unknown]
  - Syncope [Unknown]
  - Condition aggravated [Unknown]
  - Faecal incontinence [Unknown]
  - Abasia [Unknown]
  - Insomnia [Unknown]
  - Decreased appetite [Unknown]
